FAERS Safety Report 18099255 (Version 1)
Quarter: 2020Q3

REPORT INFORMATION
  Report Type: Spontaneous
  Country: US (occurrence: US)
  Receive Date: 20200731
  Receipt Date: 20200731
  Transmission Date: 20201103
  Serious: Yes (Hospitalization, Other)
  Sender: FDA-Public Use
  Company Number: US-MYLANLABS-2020M1067916

PATIENT
  Age: 5 Month
  Sex: Female

DRUGS (1)
  1. TRIAMCINOLONE [Suspect]
     Active Substance: TRIAMCINOLONE
     Indication: DERMATITIS DIAPER
     Dosage: APPLIED 4?5 TIMES DAILY FOR 3 MONTHS TO 6% OF HER BODY SURFACE AREA
     Route: 061

REACTIONS (7)
  - Cushing^s syndrome [Recovering/Resolving]
  - Skin atrophy [Unknown]
  - Inappropriate schedule of product administration [Recovering/Resolving]
  - Adrenal insufficiency [Recovering/Resolving]
  - Developmental delay [Unknown]
  - Hypophagia [Unknown]
  - Oral candidiasis [Unknown]
